FAERS Safety Report 25206062 (Version 2)
Quarter: 2025Q2

REPORT INFORMATION
  Report Type: Spontaneous
  Country: US (occurrence: US)
  Receive Date: 20250417
  Receipt Date: 20250422
  Transmission Date: 20250717
  Serious: Yes (Other)
  Sender: RANBAXY
  Company Number: US-SUN PHARMACEUTICAL INDUSTRIES LTD-2025R1-503949

PATIENT
  Age: 36 Year
  Sex: Female

DRUGS (1)
  1. SILDENAFIL [Suspect]
     Active Substance: SILDENAFIL
     Indication: Pulmonary hypertension
     Route: 065

REACTIONS (6)
  - Premature delivery [Unknown]
  - Exposure during pregnancy [Unknown]
  - Disease progression [Unknown]
  - Haemorrhage [Unknown]
  - Foetal distress syndrome [Unknown]
  - Right ventricular dysfunction [Unknown]
